FAERS Safety Report 21642417 (Version 1)
Quarter: 2022Q4

REPORT INFORMATION
  Report Type: Spontaneous
  Country: US (occurrence: US)
  Receive Date: 20221125
  Receipt Date: 20221125
  Transmission Date: 20230113
  Serious: No
  Sender: FDA-Public Use
  Company Number: US-JNJFOC-20221140211

PATIENT
  Age: 60 Year
  Sex: Female
  Weight: 76.726 kg

DRUGS (4)
  1. OPSUMIT [Suspect]
     Active Substance: MACITENTAN
     Indication: Pulmonary arterial hypertension
     Route: 048
  2. ORENITRAM [Suspect]
     Active Substance: TREPROSTINIL
     Indication: Essential hypertension
     Dosage: STRENGTH;2.5 MG
     Route: 048
     Dates: start: 20210202
  3. SILDENAFIL CITRATE [Concomitant]
     Active Substance: SILDENAFIL CITRATE
  4. FUROSEMIDE [Concomitant]
     Active Substance: FUROSEMIDE

REACTIONS (13)
  - Haemoptysis [Recovered/Resolved]
  - Headache [Unknown]
  - Feeling hot [Unknown]
  - Flushing [Unknown]
  - Dizziness [Unknown]
  - Weight increased [Unknown]
  - Fatigue [Unknown]
  - Asthenia [Unknown]
  - Apathy [Unknown]
  - Depressed mood [Unknown]
  - Abdominal distension [Unknown]
  - Vomiting [Unknown]
  - Product dose omission issue [Unknown]
